FAERS Safety Report 7082310-5 (Version None)
Quarter: 2010Q4

REPORT INFORMATION
  Report Type: 
  Country: None (occurrence: None)
  Receive Date: 20101104
  Receipt Date: 20101020
  Transmission Date: 20110411
  Serious: Yes (Other)
  Sender: FDA-Public Use
  Company Number: US-RANBAXY-2010RR-39157

PATIENT

DRUGS (3)
  1. CIPROFLOXACIN [Suspect]
     Indication: PRODUCT USED FOR UNKNOWN INDICATION
     Dosage: UNK
     Dates: start: 20080625
  2. LEVAQUIN [Suspect]
     Indication: INFECTION
     Dosage: UNK
     Route: 048
     Dates: start: 20080321, end: 20080625
  3. LEVAQUIN [Suspect]
     Dosage: 500 MG, UNK
     Dates: start: 20080321, end: 20080326

REACTIONS (3)
  - LIGAMENT RUPTURE [None]
  - TENDON DISORDER [None]
  - TENDON RUPTURE [None]
